FAERS Safety Report 5480334-2 (Version None)
Quarter: 2007Q3

REPORT INFORMATION
  Report Type: 
  Country: None (occurrence: None)
  Receive Date: 20070914
  Receipt Date: 20061009
  Transmission Date: 20080115
  Serious: Yes (Hospitalization)
  Sender: FDA-Public Use
  Company Number: 06P-163-0346473-00

PATIENT
  Sex: Female

DRUGS (1)
  1. SYNTHROID [Suspect]
     Indication: THYROID DISORDER
     Dosage: 125 MCG, 1 IN 1 D, PER ORAL
     Route: 048
     Dates: start: 19810101

REACTIONS (4)
  - BLOOD URINE PRESENT [None]
  - MYOCARDIAL INFARCTION [None]
  - THYROID FUNCTION TEST ABNORMAL [None]
  - UNEVALUABLE EVENT [None]
